FAERS Safety Report 11547874 (Version 1)
Quarter: 2015Q3

REPORT INFORMATION
  Report Type: Spontaneous
  Country: US (occurrence: US)
  Receive Date: 20150924
  Receipt Date: 20150924
  Transmission Date: 20151125
  Serious: No
  Sender: FDA-Public Use
  Company Number: US-AMNEAL PHARMACEUTICALS-2015AMN00036

PATIENT
  Age: 56 Year
  Sex: Female
  Weight: 54.42 kg

DRUGS (8)
  1. MS CONTIN [Concomitant]
     Active Substance: MORPHINE SULFATE
     Dosage: 50 MG, 1X/DAY
     Dates: start: 2013
  2. SYMBICORT [Concomitant]
     Active Substance: BUDESONIDE\FORMOTEROL FUMARATE DIHYDRATE
     Dosage: 1 DOSAGE UNITS, 2X/DAY
     Dates: start: 1994
  3. GABAPENTIN. [Suspect]
     Active Substance: GABAPENTIN
     Indication: FIBROMYALGIA
     Dosage: 1 CAPSULES, 3X/DAY
     Route: 048
     Dates: start: 20141118
  4. KLONOPIN [Concomitant]
     Active Substance: CLONAZEPAM
     Dosage: 1 MG, 2X/DAY
     Dates: start: 1994
  5. LASIX [Concomitant]
     Active Substance: FUROSEMIDE
     Dosage: 20 MG, 1X/DAY
     Dates: start: 1994
  6. SALSALATE. [Concomitant]
     Active Substance: SALSALATE
     Dosage: 1000 MG, 2X/DAY
     Dates: start: 1994
  7. KLONOPIN [Concomitant]
     Active Substance: CLONAZEPAM
     Dosage: 2 MG, 1X/DAY
     Dates: start: 1994
  8. TRAMADOL. [Concomitant]
     Active Substance: TRAMADOL
     Dosage: 100 MG, 3X/DAY
     Dates: start: 1994

REACTIONS (3)
  - Joint swelling [Not Recovered/Not Resolved]
  - Peripheral swelling [Not Recovered/Not Resolved]
  - Burning sensation [Not Recovered/Not Resolved]

NARRATIVE: CASE EVENT DATE: 20141121
